FAERS Safety Report 23281187 (Version 1)
Quarter: 2023Q4

REPORT INFORMATION
  Report Type: Spontaneous
  Country: US (occurrence: US)
  Receive Date: 20231211
  Receipt Date: 20231211
  Transmission Date: 20240109
  Serious: Yes (Hospitalization)
  Sender: FDA-Public Use
  Company Number: US-Amarin Pharma  Inc-2023AMR000475

PATIENT
  Age: 36 Year
  Sex: Male

DRUGS (3)
  1. ICOSAPENT ETHYL [Suspect]
     Active Substance: ICOSAPENT ETHYL
     Indication: Hypertriglyceridaemia
  2. NIACIN [Concomitant]
     Active Substance: NIACIN
  3. ATORVASTATIN [Concomitant]
     Active Substance: ATORVASTATIN

REACTIONS (3)
  - Pancreatitis acute [Unknown]
  - Acute kidney injury [Unknown]
  - Pancreatitis necrotising [Unknown]
